FAERS Safety Report 7315591-0 (Version None)
Quarter: 2011Q1

REPORT INFORMATION
  Report Type: 
  Country: None (occurrence: None)
  Receive Date: 20110225
  Receipt Date: 20110218
  Transmission Date: 20110831
  Serious: Yes (Death, Hospitalization)
  Sender: FDA-Public Use
  Company Number: GB-BRISTOL-MYERS SQUIBB COMPANY-15551328

PATIENT
  Age: 42 Year
  Sex: Female

DRUGS (3)
  1. IFOSFAMIDE [Suspect]
     Indication: SYNOVIAL SARCOMA
     Dosage: TWICE GIVEN OVER 3 DAYS
  2. DEXRAZOXANE HYDROCHLORIDE [Concomitant]
  3. DOXORUBICIN HCL [Suspect]
     Indication: SYNOVIAL SARCOMA
     Dosage: AGAIN RESTRATED WITH 50MG/M2

REACTIONS (5)
  - PATHOLOGICAL FRACTURE [None]
  - NEOPLASM MALIGNANT [None]
  - FUNGAL INFECTION [None]
  - SPINAL CORD COMPRESSION [None]
  - NEUTROPENIC SEPSIS [None]
